FAERS Safety Report 14045009 (Version 1)
Quarter: 2017Q4

REPORT INFORMATION
  Report Type: Spontaneous
  Country: IT (occurrence: IT)
  Receive Date: 20171005
  Receipt Date: 20171005
  Transmission Date: 20180321
  Serious: Yes (Other)
  Sender: FDA-Public Use
  Company Number: IT-SUN PHARMACEUTICAL INDUSTRIES LTD-2017RR-151321

PATIENT
  Age: 69 Year
  Sex: Female

DRUGS (4)
  1. EZETIMIBE. [Suspect]
     Active Substance: EZETIMIBE
     Indication: INFARCTION
     Dosage: 10 MG DAILY
     Route: 048
  2. SIMVASTATIN. [Suspect]
     Active Substance: SIMVASTATIN
     Indication: INFARCTION
     Dosage: 20 MG DAILY
     Route: 048
  3. FULCROSUPRA [Suspect]
     Active Substance: FENOFIBRATE
     Indication: INFARCTION
     Dosage: 145 MG DAILY
     Route: 048
  4. ATORVASTATIN [Suspect]
     Active Substance: ATORVASTATIN
     Indication: INFARCTION
     Dosage: 40 MG DAILY
     Route: 048

REACTIONS (1)
  - Myositis [Recovered/Resolved]

NARRATIVE: CASE EVENT DATE: 20130101
